FAERS Safety Report 6526700-5 (Version None)
Quarter: 2010Q1

REPORT INFORMATION
  Report Type: 
  Country: None (occurrence: None)
  Receive Date: 20100104
  Receipt Date: 20100104
  Transmission Date: 20100710
  Serious: Yes (Hospitalization)
  Sender: FDA-Public Use
  Company Number: None

PATIENT
  Age: 76 Year
  Sex: Female
  Weight: 88.4514 kg

DRUGS (2)
  1. TRAMADOL HCL [Suspect]
     Indication: ARTHRALGIA
     Dosage: 100MG AM 100MG PM  2X AM  2X PM
     Dates: start: 20091029, end: 20091113
  2. SYNTHROID [Suspect]

REACTIONS (2)
  - CEREBROVASCULAR ACCIDENT [None]
  - MENTAL DISORDER [None]
